FAERS Safety Report 9780019 (Version 2)
Quarter: 2014Q1

REPORT INFORMATION
  Report Type: Spontaneous
  Country: US (occurrence: US)
  Receive Date: 20131223
  Receipt Date: 20140131
  Transmission Date: 20141002
  Serious: Yes (Other)
  Sender: FDA-Public Use
  Company Number: US-PFIZER INC-2013366201

PATIENT
  Age: 70 Year
  Sex: Male
  Weight: 90.7 kg

DRUGS (2)
  1. LYRICA [Suspect]
     Indication: NEURITIS
     Dosage: 150 MG, 3X/DAY
     Dates: start: 2009
  2. LYRICA [Suspect]
     Indication: NEURALGIA
     Dosage: 250 MG, 3X/DAY

REACTIONS (5)
  - Coronary artery occlusion [Unknown]
  - Chest pain [Unknown]
  - Pre-existing condition improved [Unknown]
  - Therapeutic response unexpected [Unknown]
  - Genital pain [Unknown]
